FAERS Safety Report 8144144-X (Version None)
Quarter: 2012Q1

REPORT INFORMATION
  Report Type: 
  Country: None (occurrence: None)
  Receive Date: 20120217
  Receipt Date: 20120213
  Transmission Date: 20120608
  Serious: Yes (Other)
  Sender: FDA-Public Use
  Company Number: US-JNJFOC-2010026442

PATIENT
  Age: 69 Year
  Sex: Female
  Weight: 58.06 kg

DRUGS (2)
  1. ROGAINE (FOR WOMEN) [Suspect]
     Route: 061
  2. ROGAINE (FOR WOMEN) [Suspect]
     Indication: ALOPECIA
     Dosage: DAILY DOSE TEXT: UP TO THE LINE TWICE DAILY
     Route: 061

REACTIONS (5)
  - HEADACHE [None]
  - BURNING SENSATION [None]
  - PAIN [None]
  - PSORIASIS [None]
  - APPLICATION SITE RASH [None]
